FAERS Safety Report 5234736-X (Version None)
Quarter: 2007Q1

REPORT INFORMATION
  Report Type: 
  Country: None (occurrence: None)
  Receive Date: 20070209
  Receipt Date: 20070129
  Transmission Date: 20070707
  Serious: Yes (Other)
  Sender: FDA-Public Use
  Company Number: PHNU2007DE00709

PATIENT
  Age: 67 Year
  Sex: Male
  Weight: 78 kg

DRUGS (1)
  1. EMSELEX EXTENDED RELEASE [Suspect]
     Indication: INCONTINENCE
     Dosage: 1 DF, QD
     Route: 048
     Dates: start: 20061130, end: 20061202

REACTIONS (3)
  - HYPONATRAEMIA [None]
  - STOMACH DISCOMFORT [None]
  - VOMITING [None]
